FAERS Safety Report 6501505-X (Version None)
Quarter: 2009Q4

REPORT INFORMATION
  Report Type: 
  Country: None (occurrence: None)
  Receive Date: 20091216
  Receipt Date: 20091211
  Transmission Date: 20100525
  Serious: Yes (Hospitalization, Other)
  Sender: FDA-Public Use
  Company Number: A0834859A

PATIENT
  Age: 68 Year
  Sex: Male
  Weight: 90.6 kg

DRUGS (8)
  1. MELPHALAN [Suspect]
     Indication: NON-HODGKIN'S LYMPHOMA
     Route: 042
     Dates: start: 20080302
  2. VELCADE [Suspect]
     Indication: NON-HODGKIN'S LYMPHOMA
     Route: 042
     Dates: start: 20080221
  3. CARMUSTINE [Suspect]
     Indication: NON-HODGKIN'S LYMPHOMA
     Route: 042
     Dates: start: 20080226
  4. CYTARABINE [Suspect]
     Indication: NON-HODGKIN'S LYMPHOMA
     Route: 042
     Dates: start: 20080227, end: 20080301
  5. ETOPOSIDE [Suspect]
     Indication: NON-HODGKIN'S LYMPHOMA
     Route: 042
     Dates: start: 20080227, end: 20080301
  6. RITUXIMAB [Suspect]
     Indication: NON-HODGKIN'S LYMPHOMA
     Dates: end: 20080124
  7. NEXIUM [Concomitant]
  8. POTASSIUM [Concomitant]

REACTIONS (5)
  - ABDOMINAL DISTENSION [None]
  - DISCOMFORT [None]
  - FEBRILE NEUTROPENIA [None]
  - ILEUS [None]
  - NEUTROPENIA [None]
